FAERS Safety Report 9691805 (Version 2)
Quarter: 2013Q4

REPORT INFORMATION
  Report Type: Report from Study
  Country: US (occurrence: US)
  Receive Date: 20131115
  Receipt Date: 20131115
  Transmission Date: 20140711
  Serious: Yes (Death, Hospitalization)
  Sender: FDA-Public Use
  Company Number: US-ACTELION-A-NJ2013-90696

PATIENT
  Age: 50 Year
  Sex: Male

DRUGS (2)
  1. VELETRI [Suspect]
     Indication: PULMONARY ARTERIAL HYPERTENSION
     Dosage: 59 NG/KG, PER MIN
     Route: 042
     Dates: start: 20130427
  2. SILDENAFIL [Concomitant]
     Dosage: UNK

REACTIONS (3)
  - Death [Fatal]
  - Cardiac failure congestive [Unknown]
  - Malaise [Unknown]
